FAERS Safety Report 6811312-6 (Version None)
Quarter: 2010Q2

REPORT INFORMATION
  Report Type: 
  Country: None (occurrence: None)
  Receive Date: 20100630
  Receipt Date: 20091204
  Transmission Date: 20101027
  Serious: No
  Sender: FDA-Public Use
  Company Number: US-AMGEN-KDL379334

PATIENT
  Sex: Male

DRUGS (7)
  1. PROCRIT [Suspect]
     Indication: DRUG USE FOR UNKNOWN INDICATION
     Route: 058
     Dates: start: 20091117
  2. INSULIN [Concomitant]
  3. FUROSEMIDE [Concomitant]
  4. REGLAN [Concomitant]
  5. PREDNISONE [Concomitant]
  6. HUMALOG [Concomitant]
  7. QUINOCORT [Concomitant]

REACTIONS (2)
  - PARAESTHESIA [None]
  - WEIGHT DECREASED [None]
